FAERS Safety Report 19809052 (Version 1)
Quarter: 2021Q3

REPORT INFORMATION
  Report Type: Spontaneous
  Country: US (occurrence: US)
  Receive Date: 20210908
  Receipt Date: 20210908
  Transmission Date: 20211014
  Serious: Yes (Other)
  Sender: FDA-Public Use
  Company Number: US-PRAGMA-2021-US-019540

PATIENT
  Age: 78 Year
  Sex: Female
  Weight: 83 kg

DRUGS (2)
  1. TYVASO [Suspect]
     Active Substance: TREPROSTINIL
     Dosage: 60?120 ?G, QID, INHALATION
     Route: 065
     Dates: start: 20170104
  2. KEFLEX [Suspect]
     Active Substance: CEPHALEXIN
     Indication: CELLULITIS
     Route: 065
     Dates: start: 20210729

REACTIONS (4)
  - Rash erythematous [Unknown]
  - Dyspnoea [Unknown]
  - Pulmonary artery stenosis [Unknown]
  - Rash pruritic [Unknown]

NARRATIVE: CASE EVENT DATE: 2021
